FAERS Safety Report 22306941 (Version 1)
Quarter: 2023Q2

REPORT INFORMATION
  Report Type: Report from Study
  Country: US (occurrence: US)
  Receive Date: 20230511
  Receipt Date: 20230511
  Transmission Date: 20230721
  Serious: No
  Sender: FDA-Public Use
  Company Number: US-002147023-NVSC2023US103866

PATIENT
  Sex: Male
  Weight: 86.18 kg

DRUGS (2)
  1. BETAMETHASONE DIPROPIONATE [Suspect]
     Active Substance: BETAMETHASONE DIPROPIONATE
     Indication: Psoriasis
     Dosage: 0.05 %
     Route: 061
  2. DIFLUCAN [Suspect]
     Active Substance: FLUCONAZOLE
     Indication: Psoriasis
     Route: 065

REACTIONS (6)
  - Rash [Unknown]
  - Pustule [Unknown]
  - Papule [Unknown]
  - Psoriasis [Not Recovered/Not Resolved]
  - Pruritus [Unknown]
  - Drug ineffective [Unknown]
